FAERS Safety Report 9731956 (Version 1)
Quarter: 2013Q4

REPORT INFORMATION
  Report Type: Spontaneous
  Country: US (occurrence: US)
  Receive Date: 20131204
  Receipt Date: 20131204
  Transmission Date: 20140711
  Serious: Yes (Death)
  Sender: FDA-Public Use
  Company Number: US-ROXANE LABORATORIES, INC.-2013-RO-01892RO

PATIENT
  Sex: Male

DRUGS (1)
  1. METHADONE [Suspect]

REACTIONS (1)
  - Accidental overdose [Fatal]
